FAERS Safety Report 17794894 (Version 1)
Quarter: 2020Q2

REPORT INFORMATION
  Report Type: Spontaneous
  Country: MY (occurrence: MY)
  Receive Date: 20200516
  Receipt Date: 20200516
  Transmission Date: 20200714
  Serious: Yes (Life-Threatening, Other)
  Sender: FDA-Public Use
  Company Number: MY-ALVOGEN-2020-ALVOGEN-108389

PATIENT
  Age: 3 Year
  Sex: Female

DRUGS (1)
  1. MELPHALAN. [Suspect]
     Active Substance: MELPHALAN
     Indication: RETINOBLASTOMA
     Dosage: PRIOR TREATMENT INCLUDED IVC, TT AND CT WITH SECONDARY TREATMENT.
     Route: 042

REACTIONS (3)
  - Bronchospasm [Unknown]
  - Apnoea [Recovered/Resolved]
  - Bradycardia [Recovered/Resolved]
